FAERS Safety Report 13659185 (Version 1)
Quarter: 2017Q2

REPORT INFORMATION
  Report Type: Spontaneous
  Country: BR (occurrence: BR)
  Receive Date: 20170616
  Receipt Date: 20170616
  Transmission Date: 20170830
  Serious: Yes (Death, Hospitalization, Other)
  Sender: FDA-Public Use
  Company Number: BR-STRIDES ARCOLAB LIMITED-2017SP009539

PATIENT

DRUGS (2)
  1. MYCOPHENOLATE MOFETIL. [Suspect]
     Active Substance: MYCOPHENOLATE MOFETIL
     Indication: PEMPHIGUS
     Dosage: 3 G, PER DAY
     Route: 065
  2. PREDNISOLONE. [Suspect]
     Active Substance: PREDNISOLONE
     Indication: PEMPHIGUS
     Dosage: 60 MG, PER DAY
     Route: 065

REACTIONS (17)
  - Normochromic normocytic anaemia [Unknown]
  - Pneumonia [Unknown]
  - Cytomegalovirus gastrointestinal infection [Unknown]
  - Odynophagia [Recovered/Resolved]
  - Gastritis erosive [Unknown]
  - Urinary tract infection [Unknown]
  - Tongue ulceration [Unknown]
  - Off label use [Unknown]
  - Pulmonary embolism [Fatal]
  - Atrial thrombosis [Unknown]
  - Septic shock [Unknown]
  - Multiple organ dysfunction syndrome [Unknown]
  - Diarrhoea [Not Recovered/Not Resolved]
  - Oral disorder [Unknown]
  - Gastric ulcer haemorrhage [Unknown]
  - Erosive oesophagitis [Unknown]
  - Cardiac arrest [Unknown]
